FAERS Safety Report 7729062-0 (Version None)
Quarter: 2011Q3

REPORT INFORMATION
  Report Type: 
  Country: None (occurrence: None)
  Receive Date: 20110906
  Receipt Date: 20110831
  Transmission Date: 20111222
  Serious: Yes (Other)
  Sender: FDA-Public Use
  Company Number: CA-ROXANE LABORATORIES, INC.-2011-RO-01202RO

PATIENT
  Age: 82 Year
  Sex: Female

DRUGS (4)
  1. SALMETEROL [Suspect]
  2. FLUTICASONE PROPIONATE [Suspect]
  3. ARICEPT [Suspect]
     Indication: COGNITIVE DISORDER
     Dosage: 10 MG
  4. ARICEPT [Suspect]
     Indication: AMNESIA

REACTIONS (6)
  - HYPOXIA [None]
  - CHEST DISCOMFORT [None]
  - WHEEZING [None]
  - PEAK EXPIRATORY FLOW RATE DECREASED [None]
  - SPUTUM ABNORMAL [None]
  - DYSPNOEA [None]
